FAERS Safety Report 19330664 (Version 1)
Quarter: 2021Q2

REPORT INFORMATION
  Report Type: Spontaneous
  Country: US (occurrence: US)
  Receive Date: 20210528
  Receipt Date: 20210528
  Transmission Date: 20210717
  Serious: No
  Sender: FDA-Public Use
  Company Number: US-BEH-2021132153

PATIENT
  Age: 15 Year
  Sex: Female

DRUGS (12)
  1. IRON [Concomitant]
     Active Substance: IRON
  2. MYCOPHENOLATE [Concomitant]
     Active Substance: MYCOPHENOLIC ACID
  3. ORENCIA [Concomitant]
     Active Substance: ABATACEPT
  4. PLAQUENIL S [Concomitant]
     Active Substance: HYDROXYCHLOROQUINE SULFATE
  5. VITAMIN D [COLECALCIFEROL] [Concomitant]
     Active Substance: CHOLECALCIFEROL
  6. AMLODIPINE [Concomitant]
     Active Substance: AMLODIPINE BESYLATE
  7. MAGNESIUM [Concomitant]
     Active Substance: MAGNESIUM
  8. METOTREXATE [Concomitant]
     Active Substance: METHOTREXATE SODIUM
  9. PREDNISONE. [Concomitant]
     Active Substance: PREDNISONE
  10. COQ10 [TOCOPHERYL ACETATE;UBIDECARENONE] [Concomitant]
  11. HIZENTRA [Suspect]
     Active Substance: HUMAN IMMUNOGLOBULIN G
     Dosage: 20 GRAM, QD, 100ML INTO TWO 50ML SYRINGES. 100ML (20GM)
     Route: 058
     Dates: start: 20210428
  12. OMEPRAZOLE. [Concomitant]
     Active Substance: OMEPRAZOLE

REACTIONS (2)
  - Headache [Recovered/Resolved]
  - Diarrhoea [Recovered/Resolved]

NARRATIVE: CASE EVENT DATE: 20210513
